FAERS Safety Report 7129749-7 (Version None)
Quarter: 2010Q4

REPORT INFORMATION
  Report Type: 
  Country: None (occurrence: None)
  Receive Date: 20101130
  Receipt Date: 20101119
  Transmission Date: 20110411
  Serious: Yes (Other)
  Sender: FDA-Public Use
  Company Number: JP-PFIZER INC-2010146244

PATIENT
  Age: 97 Year
  Sex: Female

DRUGS (8)
  1. LYRICA [Suspect]
     Indication: POST HERPETIC NEURALGIA
     Dosage: 25 MG, UNK
     Route: 048
     Dates: start: 20101104, end: 20101111
  2. SPIRONOLACTONE [Concomitant]
     Dosage: UNK
  3. ALLOZYM [Concomitant]
     Dosage: UNK
  4. OLMETEC [Concomitant]
     Dosage: UNK
  5. ASPIRIN [Concomitant]
     Dosage: UNK
  6. DIART [Concomitant]
     Dosage: UNK
  7. DIGOXIN [Concomitant]
     Dosage: UNK
  8. FRANDOL [Concomitant]
     Dosage: UNK

REACTIONS (2)
  - DYSKINESIA [None]
  - FALL [None]
